FAERS Safety Report 7775554 (Version 8)
Quarter: 2014Q1

REPORT INFORMATION
  Report Type: Spontaneous
  Country: US (occurrence: US)
  Receive Date: 20110127
  Receipt Date: 20140117
  Transmission Date: 20141002
  Serious: Yes (Hospitalization, Other)
  Sender: FDA-Public Use
  Company Number: US-BIOGENIDEC-2011BI002422

PATIENT
  Age: 46 Year
  Sex: Female
  Weight: 140 kg

DRUGS (6)
  1. AVONEX [Suspect]
     Indication: MULTIPLE SCLEROSIS
     Route: 030
     Dates: start: 2000, end: 2003
  2. AVONEX [Suspect]
     Indication: MULTIPLE SCLEROSIS
     Route: 030
     Dates: start: 2003, end: 2003
  3. AVONEX [Suspect]
     Indication: MULTIPLE SCLEROSIS
     Route: 030
     Dates: start: 2003, end: 20070117
  4. AVONEX [Suspect]
     Indication: MULTIPLE SCLEROSIS
     Route: 030
     Dates: start: 20071001, end: 20100430
  5. AVONEX [Suspect]
     Indication: MULTIPLE SCLEROSIS
     Route: 030
     Dates: start: 20110207
  6. REBIF [Concomitant]
     Dates: start: 2010, end: 201011

REACTIONS (15)
  - Uterine haemorrhage [Recovered/Resolved]
  - Endometrial cancer stage I [Recovered/Resolved]
  - Cervix carcinoma [Recovered/Resolved]
  - Pulmonary embolism [Recovered/Resolved]
  - Impaired healing [Recovered/Resolved]
  - Drug hypersensitivity [Recovered/Resolved]
  - Urinary incontinence [Recovered/Resolved]
  - Fall [Recovered/Resolved]
  - Balance disorder [Not Recovered/Not Resolved]
  - Dental caries [Recovered/Resolved]
  - Aspiration [Not Recovered/Not Resolved]
  - Hiatus hernia [Recovered/Resolved]
  - Influenza like illness [Recovered/Resolved]
  - Pyrexia [Recovered/Resolved]
  - Multiple sclerosis relapse [Recovered/Resolved]
